APPROVED DRUG PRODUCT: ISOLYTE M IN DEXTROSE 5% IN PLASTIC CONTAINER
Active Ingredient: DEXTROSE; POTASSIUM CHLORIDE; POTASSIUM PHOSPHATE, DIBASIC; SODIUM ACETATE; SODIUM CHLORIDE
Strength: 5GM/100ML;150MG/100ML;130MG/100ML;280MG/100ML;91MG/100ML
Dosage Form/Route: INJECTABLE;INJECTION
Application: N019870 | Product #001
Applicant: B BRAUN MEDICAL INC
Approved: Jun 10, 1993 | RLD: No | RS: No | Type: DISCN